FAERS Safety Report 13725426 (Version 2)
Quarter: 2017Q3

REPORT INFORMATION
  Report Type: Spontaneous
  Country: US (occurrence: US)
  Receive Date: 20170707
  Receipt Date: 20170710
  Transmission Date: 20171127
  Serious: No
  Sender: FDA-Public Use
  Company Number: US-BAYER-2017-130450

PATIENT
  Age: 43 Year
  Sex: Male
  Weight: 182 kg

DRUGS (2)
  1. CLARITIN-D NOS [Suspect]
     Active Substance: LORATADINE\PSEUDOEPHEDRINE SULFATE
     Indication: HYPERSENSITIVITY
     Dosage: AS DIRECTED, ONCE DAILY
     Route: 048
     Dates: start: 2014, end: 20170705
  2. CLARITIN-D NOS [Suspect]
     Active Substance: LORATADINE\PSEUDOEPHEDRINE SULFATE
     Indication: NASOPHARYNGITIS

REACTIONS (1)
  - Erectile dysfunction [Not Recovered/Not Resolved]

NARRATIVE: CASE EVENT DATE: 20170406
